FAERS Safety Report 6274716-9 (Version None)
Quarter: 2009Q3

REPORT INFORMATION
  Report Type: 
  Country: None (occurrence: None)
  Receive Date: 20090721
  Receipt Date: 20070905
  Transmission Date: 20100115
  Serious: Yes (Hospitalization, Other)
  Sender: FDA-Public Use
  Company Number: US-ASTRAZENECA-2006UW10738

PATIENT
  Age: 466 Month
  Sex: Male
  Weight: 122.5 kg

DRUGS (15)
  1. SEROQUEL [Suspect]
     Indication: BIPOLAR DISORDER
     Route: 048
     Dates: start: 20030616, end: 20060201
  2. SEROQUEL [Suspect]
     Indication: DEPRESSION
     Route: 048
     Dates: start: 20030616, end: 20060201
  3. SEROQUEL [Suspect]
     Route: 048
     Dates: start: 20041001, end: 20060301
  4. SEROQUEL [Suspect]
     Route: 048
     Dates: start: 20041001, end: 20060301
  5. GEODON [Concomitant]
     Dates: start: 20060214
  6. ZYPREXA [Concomitant]
     Route: 048
     Dates: end: 20060201
  7. CYMBALTA [Concomitant]
     Dosage: 60 IN THE MORNING
     Route: 048
     Dates: start: 20030616
  8. SYMBYAX [Concomitant]
     Dosage: 6 TO 60 IN THE MORNING
     Route: 048
     Dates: start: 20030616
  9. GLYBURIDE [Concomitant]
     Route: 048
     Dates: start: 20060216
  10. METFORMIN HCL [Concomitant]
     Route: 048
     Dates: start: 20060216
  11. NOVOLOG INSULIN 70/30 [Concomitant]
     Dosage: 20 TO 35 UNITS
     Dates: start: 20060216
  12. LISINOPRIL [Concomitant]
     Route: 048
     Dates: start: 20060216
  13. LASIX [Concomitant]
     Route: 048
     Dates: start: 20060124
  14. K-DUR [Concomitant]
     Route: 048
     Dates: start: 20060124
  15. PREDNISONE [Concomitant]
     Indication: CHRONIC OBSTRUCTIVE PULMONARY DISEASE
     Route: 048
     Dates: start: 20060124

REACTIONS (13)
  - ACUTE RESPIRATORY FAILURE [None]
  - ARRHYTHMIA [None]
  - ASTHMA [None]
  - CHRONIC OBSTRUCTIVE PULMONARY DISEASE [None]
  - COR PULMONALE CHRONIC [None]
  - DIABETES MELLITUS [None]
  - DIABETES MELLITUS INADEQUATE CONTROL [None]
  - DIABETIC RETINOPATHY [None]
  - ORTHOPNOEA [None]
  - OXYGEN SATURATION DECREASED [None]
  - PULMONARY HYPERTENSION [None]
  - RIGHT VENTRICULAR FAILURE [None]
  - TYPE 2 DIABETES MELLITUS [None]
